FAERS Safety Report 6136278-6 (Version None)
Quarter: 2009Q1

REPORT INFORMATION
  Report Type: 
  Country: None (occurrence: None)
  Receive Date: 20090330
  Receipt Date: 20090323
  Transmission Date: 20090719
  Serious: Yes (Other)
  Sender: FDA-Public Use
  Company Number: DE-BRISTOL-MYERS SQUIBB COMPANY-14314702

PATIENT
  Age: 28 Year
  Sex: Female

DRUGS (2)
  1. ABILIFY [Suspect]
     Indication: SCHIZOPHRENIA
     Dosage: DURATION: 2.5YRS,ALSO AS EVERY OTHER DAY.
     Route: 048
  2. ABILIFY [Suspect]
     Indication: SCHIZOPHRENIA, PARANOID TYPE
     Dosage: DURATION: 2.5YRS,ALSO AS EVERY OTHER DAY.
     Route: 048

REACTIONS (2)
  - PREGNANCY [None]
  - PREMATURE LABOUR [None]
